FAERS Safety Report 5173290-8 (Version None)
Quarter: 2006Q4

REPORT INFORMATION
  Report Type: 
  Country: None (occurrence: None)
  Receive Date: 20061214
  Receipt Date: 20061204
  Transmission Date: 20070319
  Serious: Yes (Hospitalization)
  Sender: FDA-Public Use
  Company Number: US-AMGEN-US202378

PATIENT
  Sex: Male
  Weight: 78.1 kg

DRUGS (23)
  1. ARANESP [Suspect]
     Indication: RENAL FAILURE CHRONIC
     Route: 065
     Dates: start: 20040201
  2. ACETAMINOPHEN [Concomitant]
  3. ACTONEL [Concomitant]
  4. ALBUTEROL [Concomitant]
  5. ALDACTONE [Concomitant]
  6. ALLOPURINOL [Concomitant]
  7. ASPIRIN [Concomitant]
  8. BECONASE AQUA [Concomitant]
  9. BUMEX [Concomitant]
  10. CALCITRIOL [Concomitant]
  11. CYCLOSPORINE [Concomitant]
  12. DIGOXIN [Concomitant]
  13. FLONASE [Concomitant]
  14. NEURONTIN [Concomitant]
  15. PREDNISONE TAB [Concomitant]
  16. PROTONIX [Concomitant]
  17. REGLAN [Concomitant]
  18. SYNTHROID [Concomitant]
  19. TOPROL-XL [Concomitant]
  20. VICODIN [Concomitant]
  21. VITAMIN D [Concomitant]
  22. ZOCOR [Concomitant]
  23. ZOLOFT [Concomitant]

REACTIONS (3)
  - ANAEMIA [None]
  - ASTHENIA [None]
  - HYPOTENSION [None]
